FAERS Safety Report 18334537 (Version 1)
Quarter: 2020Q4

REPORT INFORMATION
  Report Type: Spontaneous
  Country: US (occurrence: US)
  Receive Date: 20201001
  Receipt Date: 20201001
  Transmission Date: 20210113
  Serious: No
  Sender: FDA-Public Use
  Company Number: None

PATIENT
  Age: 75 Year
  Sex: Female

DRUGS (1)
  1. DEXTENZA [Suspect]
     Active Substance: DEXAMETHASONE
     Route: 047
     Dates: start: 20200722

REACTIONS (2)
  - Lacrimation increased [None]
  - Dacryostenosis acquired [None]

NARRATIVE: CASE EVENT DATE: 20200729
